FAERS Safety Report 17678879 (Version 3)
Quarter: 2022Q1

REPORT INFORMATION
  Report Type: Report from Study
  Country: US (occurrence: None)
  Receive Date: 20200417
  Receipt Date: 20220215
  Transmission Date: 20220423
  Serious: Yes (Hospitalization, Other)
  Sender: FDA-Public Use
  Company Number: US-ROCHE-2206961

PATIENT
  Age: 52 Year
  Sex: Female
  Weight: 26.6 kg

DRUGS (2)
  1. ATEZOLIZUMAB [Suspect]
     Active Substance: ATEZOLIZUMAB
     Indication: Alveolar soft part sarcoma
     Dosage: ON 01/AUG/2018, SHE RECEIVED THE MOST RECENT DOSE OF ATEZOLIZUMAB PRIOR TO EVENTS ONSET.
     Route: 041
     Dates: start: 20180620
  2. ISAVUCONAZONIUM [Concomitant]
     Active Substance: ISAVUCONAZONIUM

REACTIONS (10)
  - Dyspnoea [Recovering/Resolving]
  - Cough [Recovering/Resolving]
  - Muscular weakness [Recovering/Resolving]
  - Sinus tachycardia [Recovering/Resolving]
  - Pneumonia [Unknown]
  - Respiratory failure [Unknown]
  - Laryngeal haemorrhage [Not Recovered/Not Resolved]
  - Obstructive airways disorder [Not Recovered/Not Resolved]
  - Pulmonary embolism [Not Recovered/Not Resolved]
  - Decreased appetite [Unknown]

NARRATIVE: CASE EVENT DATE: 20180805
